FAERS Safety Report 12398985 (Version 1)
Quarter: 2016Q2

REPORT INFORMATION
  Report Type: Report from Study
  Country: US (occurrence: US)
  Receive Date: 20160524
  Receipt Date: 20160524
  Transmission Date: 20160815
  Serious: Yes (Hospitalization)
  Sender: FDA-Public Use
  Company Number: US-ASTRAZENECA-2016SE53413

PATIENT
  Age: 28178 Day
  Sex: Male

DRUGS (2)
  1. TAGRISSO [Suspect]
     Active Substance: OSIMERTINIB
     Indication: LUNG NEOPLASM MALIGNANT
     Route: 048
     Dates: start: 20160407, end: 20160513
  2. NONE LISTED [Concomitant]

REACTIONS (5)
  - Diarrhoea [Unknown]
  - Dehydration [Unknown]
  - Heart rate increased [Unknown]
  - Skin lesion [Unknown]
  - Hypotension [Unknown]

NARRATIVE: CASE EVENT DATE: 20160423
